FAERS Safety Report 6713837-0 (Version None)
Quarter: 2010Q2

REPORT INFORMATION
  Report Type: 
  Country: None (occurrence: None)
  Receive Date: 20100506
  Receipt Date: 20100426
  Transmission Date: 20101027
  Serious: Yes (Hospitalization)
  Sender: FDA-Public Use
  Company Number: US-AMGEN-QUU405684

PATIENT
  Sex: Male
  Weight: 128.9 kg

DRUGS (3)
  1. ENBREL [Suspect]
     Indication: RHEUMATOID ARTHRITIS
     Route: 058
     Dates: start: 20040707
  2. PLAQUENIL [Concomitant]
     Dates: start: 20081229
  3. METHOTREXATE [Concomitant]
     Dates: start: 20081229

REACTIONS (2)
  - LUMBAR RADICULOPATHY [None]
  - NASOPHARYNGITIS [None]
